FAERS Safety Report 10443350 (Version 5)
Quarter: 2017Q2

REPORT INFORMATION
  Report Type: Report from Study
  Country: CA (occurrence: CA)
  Receive Date: 20140910
  Receipt Date: 20170629
  Transmission Date: 20170829
  Serious: Yes (Other)
  Sender: FDA-Public Use
  Company Number: CA-ROCHE-1186023

PATIENT
  Age: 53 Year
  Sex: Female
  Weight: 67 kg

DRUGS (17)
  1. RITUXAN [Suspect]
     Active Substance: RITUXIMAB
     Indication: RHEUMATOID ARTHRITIS
     Dosage: FREQUENCY: DAY 1 AND DAY 15?LAST DOSE ON 30/APR/2014.?LAST DOSE ON 06/JUN/2017
     Route: 042
     Dates: start: 20130926
  2. FERROUS SULFATE. [Concomitant]
     Active Substance: FERROUS SULFATE
  3. NAPROXEN. [Concomitant]
     Active Substance: NAPROXEN
     Route: 065
  4. ACTEMRA [Suspect]
     Active Substance: TOCILIZUMAB
     Route: 042
     Dates: start: 20130529
  5. EURO-FOLIC [Concomitant]
  6. FOLIC ACID. [Concomitant]
     Active Substance: FOLIC ACID
  7. ACTEMRA [Suspect]
     Active Substance: TOCILIZUMAB
     Route: 042
     Dates: end: 20130724
  8. ACTEMRA [Suspect]
     Active Substance: TOCILIZUMAB
     Indication: RHEUMATOID ARTHRITIS
     Route: 042
     Dates: start: 20121016, end: 20130724
  9. ACTEMRA [Suspect]
     Active Substance: TOCILIZUMAB
     Route: 042
     Dates: start: 20130121
  10. CYKLOKAPRON [Concomitant]
     Active Substance: TRANEXAMIC ACID
  11. CELEBREX [Concomitant]
     Active Substance: CELECOXIB
  12. METHOTREXATE. [Concomitant]
     Active Substance: METHOTREXATE
  13. METHYLPREDNISOLONE. [Concomitant]
     Active Substance: METHYLPREDNISOLONE
     Indication: PREMEDICATION
     Route: 042
     Dates: start: 20130926
  14. ACTEMRA [Suspect]
     Active Substance: TOCILIZUMAB
     Route: 042
     Dates: start: 20130424
  15. ACTEMRA [Suspect]
     Active Substance: TOCILIZUMAB
     Route: 042
     Dates: start: 20130327
  16. ACTEMRA [Suspect]
     Active Substance: TOCILIZUMAB
     Route: 042
     Dates: start: 20130626
  17. ACETAMINOPHEN. [Concomitant]
     Active Substance: ACETAMINOPHEN
     Indication: PREMEDICATION
     Route: 048
     Dates: start: 20130926

REACTIONS (11)
  - Uterine disorder [Unknown]
  - Ill-defined disorder [Recovered/Resolved]
  - Bronchitis [Not Recovered/Not Resolved]
  - Gastric disorder [Unknown]
  - Infusion related reaction [Unknown]
  - Vulvovaginal discomfort [Unknown]
  - Anaemia [Not Recovered/Not Resolved]
  - Menorrhagia [Unknown]
  - Arthralgia [Not Recovered/Not Resolved]
  - Drug effect decreased [Unknown]
  - Fibroma [Recovered/Resolved]

NARRATIVE: CASE EVENT DATE: 201211
